FAERS Safety Report 10655788 (Version 4)
Quarter: 2014Q4

REPORT INFORMATION
  Report Type: Spontaneous
  Country: JP (occurrence: JP)
  Receive Date: 20141216
  Receipt Date: 20141230
  Transmission Date: 20150529
  Serious: Yes (Other)
  Sender: FDA-Public Use
  Company Number: JP-PFIZER INC-2014336202

PATIENT
  Age: 49 Year
  Sex: Female
  Weight: 52 kg

DRUGS (7)
  1. ZITHROMAC SR [Suspect]
     Active Substance: AZITHROMYCIN DIHYDRATE
     Indication: BRONCHITIS
     Dosage: 2 G, SINGLE
     Route: 048
     Dates: start: 20141125, end: 20141125
  2. ASTOMARI [Concomitant]
     Dosage: UNK
  3. MUCODYNE [Concomitant]
     Active Substance: CARBOCYSTEINE
     Dosage: UNK
  4. MEBUTIT [Suspect]
     Active Substance: TRIMEBUTINE MALEATE
     Dosage: UNK, 1X/DAY
     Route: 048
     Dates: start: 20141125
  5. HUSCODE [Concomitant]
     Active Substance: CHLORPHENIRAMINE MALEAT\DIHYDROCODEINE PHOSPHATE\METHYLEPHEDRINE HYDROCHLORIDE, DL-
     Dosage: UNK
  6. SELTEPNON [Concomitant]
     Active Substance: TEPRENONE
     Dosage: UNK
  7. CALONAL [Concomitant]
     Active Substance: ACETAMINOPHEN
     Dosage: UNK

REACTIONS (4)
  - Fall [Recovered/Resolved]
  - Loss of consciousness [Recovered/Resolved]
  - Nausea [Recovered/Resolved]
  - Malaise [Recovered/Resolved]

NARRATIVE: CASE EVENT DATE: 20141125
